FAERS Safety Report 6591460-9 (Version None)
Quarter: 2010Q1

REPORT INFORMATION
  Report Type: 
  Country: None (occurrence: None)
  Receive Date: 20100219
  Receipt Date: 20100208
  Transmission Date: 20100710
  Serious: Yes (Hospitalization, Other)
  Sender: FDA-Public Use
  Company Number: US-ELI_LILLY_AND_COMPANY-US201002003232

PATIENT
  Sex: Female

DRUGS (16)
  1. FORTEO [Suspect]
     Indication: OSTEOPOROSIS
     Dosage: 20 UG, DAILY (1/D)
     Dates: start: 20091101
  2. OXYCODONE [Concomitant]
     Dosage: UNK, UNKNOWN
  3. LISINOPRIL [Concomitant]
     Dosage: UNK, UNKNOWN
  4. ASPIRIN [Concomitant]
     Dosage: UNK, UNKNOWN
  5. NEXIUM [Concomitant]
     Dosage: UNK, UNKNOWN
  6. VITAMIN B-12 [Concomitant]
     Dosage: UNK, UNKNOWN
  7. EVOXAC [Concomitant]
     Dosage: UNK, UNKNOWN
  8. PREMPRO [Concomitant]
     Dosage: UNK, UNKNOWN
  9. PLAQUENIL [Concomitant]
     Dosage: UNK, UNKNOWN
  10. NEURONTIN [Concomitant]
     Dosage: UNK, UNKNOWN
  11. DIAZEPAM [Concomitant]
     Dosage: UNK, UNKNOWN
  12. AMBIEN [Concomitant]
     Dosage: UNK, UNKNOWN
  13. CYMBALTA [Concomitant]
     Dosage: UNK, WEEKLY (1/W)
  14. MEDROL [Concomitant]
     Dosage: UNK, UNKNOWN
  15. CHOLESTYRAMINE [Concomitant]
     Dosage: UNK, UNKNOWN
  16. SKELAXIN [Concomitant]
     Dosage: UNK, UNKNOWN

REACTIONS (12)
  - ABASIA [None]
  - COLONIC OBSTRUCTION [None]
  - CONTUSION [None]
  - DIARRHOEA [None]
  - DIVERTICULITIS [None]
  - GASTROINTESTINAL INFLAMMATION [None]
  - INCOHERENT [None]
  - LARGE INTESTINAL HAEMORRHAGE [None]
  - LOSS OF CONSCIOUSNESS [None]
  - SKIN DISCOLOURATION [None]
  - SPEECH DISORDER [None]
  - VOMITING [None]
